FAERS Safety Report 9846035 (Version 4)
Quarter: 2015Q1

REPORT INFORMATION
  Report Type: Spontaneous
  Country: US (occurrence: US)
  Receive Date: 20140127
  Receipt Date: 20150219
  Transmission Date: 20150721
  Serious: Yes (Hospitalization, Disabling, Other)
  Sender: FDA-Public Use
  Company Number: US-009507513-1401USA011901

PATIENT
  Sex: Male
  Weight: 122.45 kg

DRUGS (2)
  1. BAYER ASPIRIN [Concomitant]
     Active Substance: ASPIRIN
     Indication: CARDIOVASCULAR EVENT PROPHYLAXIS
     Dosage: UNK
     Dates: start: 1997
  2. JANUVIA [Suspect]
     Active Substance: SITAGLIPTIN PHOSPHATE
     Indication: TYPE 2 DIABETES MELLITUS
     Dosage: 100 MG, QD
     Route: 048
     Dates: start: 20071129, end: 20120413

REACTIONS (20)
  - Pancreatic carcinoma [Recovered/Resolved]
  - Hypertension [Not Recovered/Not Resolved]
  - Adrenal adenoma [Unknown]
  - Hypertriglyceridaemia [Unknown]
  - Pancreatectomy [Unknown]
  - Hepatectomy [Unknown]
  - Diabetes mellitus inadequate control [Unknown]
  - Aortic arteriosclerosis [Unknown]
  - Osteoarthritis [Unknown]
  - Knee arthroplasty [Unknown]
  - Renal cyst [Unknown]
  - Wheezing [Unknown]
  - Hyperlipidaemia [Unknown]
  - Peptic ulcer [Unknown]
  - Splenectomy [Unknown]
  - Pancreatic pseudocyst [Unknown]
  - Cholelithiasis [Not Recovered/Not Resolved]
  - Shoulder operation [Unknown]
  - Nephrolithiasis [Unknown]
  - Cough [Unknown]

NARRATIVE: CASE EVENT DATE: 2009
